FAERS Safety Report 7850721-3 (Version None)
Quarter: 2011Q4

REPORT INFORMATION
  Report Type: 
  Country: None (occurrence: None)
  Receive Date: 20111026
  Receipt Date: 20111019
  Transmission Date: 20120403
  Serious: Yes (Death, Hospitalization)
  Sender: FDA-Public Use
  Company Number: FR-TEVA-303360ISR

PATIENT
  Sex: Female

DRUGS (5)
  1. BUSULFAN [Suspect]
     Indication: GRAFT COMPLICATION
     Route: 042
     Dates: start: 20110821, end: 20110824
  2. CYCLOPHOSPHAMIDE [Suspect]
     Indication: GRAFT COMPLICATION
     Route: 042
     Dates: start: 20110826, end: 20110829
  3. METHOTREXATE [Suspect]
     Route: 042
     Dates: start: 20110904
  4. METHOTREXATE [Suspect]
     Indication: GRAFT COMPLICATION
     Route: 042
     Dates: start: 20110902
  5. METHOTREXATE [Suspect]
     Route: 042
     Dates: start: 20110907, end: 20110907

REACTIONS (4)
  - SHOCK [None]
  - ACUTE GRAFT VERSUS HOST DISEASE IN SKIN [None]
  - ACUTE RESPIRATORY DISTRESS SYNDROME [None]
  - PULMONARY HAEMORRHAGE [None]
